FAERS Safety Report 5907238-2 (Version None)
Quarter: 2008Q4

REPORT INFORMATION
  Report Type: 
  Country: None (occurrence: None)
  Receive Date: 20081003
  Receipt Date: 20080926
  Transmission Date: 20090506
  Serious: Yes (Other)
  Sender: FDA-Public Use
  Company Number: PHHY2008CH22893

PATIENT
  Sex: Male

DRUGS (4)
  1. ZOMETA [Suspect]
     Indication: PROSTATE CANCER
     Dosage: 4 MG, QMO
     Route: 042
     Dates: start: 20030117, end: 20050101
  2. ZOMETA [Suspect]
     Dosage: 4 MG, Q2MO
     Route: 042
     Dates: start: 20050101
  3. CASODEX [Concomitant]
     Indication: PROSTATE CANCER
     Dosage: UNK
     Dates: end: 20080901
  4. ZOLADEX [Concomitant]
     Indication: PROSTATE CANCER
     Dosage: UNK

REACTIONS (2)
  - ARTHRALGIA [None]
  - OSTEONECROSIS [None]
